FAERS Safety Report 8303077-6 (Version None)
Quarter: 2012Q2

REPORT INFORMATION
  Report Type: 
  Country: None (occurrence: None)
  Receive Date: 20120422
  Receipt Date: 20120416
  Transmission Date: 20120825
  Serious: Yes (Life-Threatening)
  Sender: FDA-Public Use
  Company Number: CH-BRISTOL-MYERS SQUIBB COMPANY-16536021

PATIENT
  Age: 49 Year
  Sex: Male

DRUGS (3)
  1. CETUXIMAB [Suspect]
     Indication: OESOPHAGEAL CARCINOMA
     Dosage: INFUSION, RECENT INFUSION: 20MAR12
     Route: 042
     Dates: start: 20120220
  2. CISPLATIN [Suspect]
     Indication: OESOPHAGEAL CARCINOMA
     Dosage: RECENT INFUSION: 20MAR12
     Route: 042
     Dates: start: 20120220
  3. DOCETAXEL [Suspect]
     Indication: OESOPHAGEAL CARCINOMA
     Dosage: RECENT INFUSION : 23MAR12
     Route: 042
     Dates: start: 20120220

REACTIONS (2)
  - PELVIC VENOUS THROMBOSIS [None]
  - JUGULAR VEIN THROMBOSIS [None]
